FAERS Safety Report 5283501-6 (Version None)
Quarter: 2007Q1

REPORT INFORMATION
  Report Type: 
  Country: None (occurrence: None)
  Receive Date: 20061226
  Receipt Date: 20061115
  Transmission Date: 20070707
  Serious: No
  Sender: FDA-Public Use
  Company Number: 2006PV025315

PATIENT
  Age: 57 Year
  Sex: Female
  Weight: 92.0802 kg

DRUGS (4)
  1. SYMLIN [Suspect]
     Indication: DIABETES MELLITUS NON-INSULIN-DEPENDENT
     Dosage: SEE IMAGE
     Route: 058
     Dates: start: 20061101, end: 20061101
  2. SYMLIN [Suspect]
     Indication: DIABETES MELLITUS NON-INSULIN-DEPENDENT
     Dosage: SEE IMAGE
     Route: 058
     Dates: start: 20061101
  3. HUMALOG [Concomitant]
  4. LANTUS [Concomitant]

REACTIONS (4)
  - DIARRHOEA [None]
  - DIZZINESS [None]
  - MEDICATION ERROR [None]
  - NAUSEA [None]
